FAERS Safety Report 22281336 (Version 1)
Quarter: 2023Q2

REPORT INFORMATION
  Report Type: Spontaneous
  Country: US (occurrence: US)
  Receive Date: 20230504
  Receipt Date: 20230504
  Transmission Date: 20230722
  Serious: No
  Sender: FDA-Public Use
  Company Number: US-Accord-299258

PATIENT
  Sex: Male

DRUGS (2)
  1. FLUOROURACIL [Suspect]
     Active Substance: FLUOROURACIL
     Indication: Basal cell carcinoma
     Dosage: STRENGTH: 5%?SMALL AMOUNT TOPICALLY, ONCE DAILY FOR 2-4 WEEKS
     Route: 061
     Dates: start: 202209
  2. FLUOROURACIL [Suspect]
     Active Substance: FLUOROURACIL
     Indication: Basal cell carcinoma
     Dosage: APPLY SMALL AMOUNT TO EFFECTED AREAS FOR 2-4 WEEKS
     Route: 061
     Dates: start: 202301

REACTIONS (2)
  - Application site erythema [Recovered/Resolved]
  - Application site inflammation [Recovered/Resolved]
